FAERS Safety Report 11681492 (Version 1)
Quarter: 2015Q4

REPORT INFORMATION
  Report Type: Spontaneous
  Country: GB (occurrence: GB)
  Receive Date: 20151029
  Receipt Date: 20151029
  Transmission Date: 20160304
  Serious: Yes (Disabling)
  Sender: FDA-Public Use
  Company Number: GB-ACCORD-034792

PATIENT
  Age: 59 Year
  Sex: Female
  Weight: 73 kg

DRUGS (12)
  1. DOMPERIDONE [Concomitant]
     Active Substance: DOMPERIDONE
     Dosage: TAKE ONE UP TO 3 TIMES/DAY
     Dates: start: 20140930, end: 20150915
  2. DOCUSATE [Concomitant]
     Active Substance: DOCUSATE
     Dosage: AS DIRECTED
     Dates: start: 20140930, end: 20150915
  3. ZOLPIDEM [Concomitant]
     Active Substance: ZOLPIDEM\ZOLPIDEM TARTRATE
     Dosage: AT NIGHT
     Dates: start: 20140930
  4. OMEPRAZOLE. [Concomitant]
     Active Substance: OMEPRAZOLE
     Dates: start: 20150312
  5. CIPROFLOXACIN. [Concomitant]
     Active Substance: CIPROFLOXACIN
     Dates: start: 20140930, end: 20150915
  6. IBUPROFEN. [Concomitant]
     Active Substance: IBUPROFEN
     Dosage: TAKE 1-2 UP TO THREE TIMES A DAY
     Dates: start: 20141112, end: 20150915
  7. TRAMADOL. [Concomitant]
     Active Substance: TRAMADOL
     Dosage: AT NIGHT
     Dates: start: 20140930, end: 20150915
  8. VENTOLIN [Concomitant]
     Active Substance: ALBUTEROL SULFATE
     Route: 055
     Dates: start: 20150622
  9. LETROZOLE. [Suspect]
     Active Substance: LETROZOLE
     Indication: PRODUCT USED FOR UNKNOWN INDICATION
     Dates: start: 20150527
  10. HYOSCINE [Concomitant]
     Active Substance: SCOPOLAMINE
     Dosage: UP TO FOUR TIMES A DAY
     Dates: start: 20140930, end: 20150915
  11. TAMOXIFEN/TAMOXIFEN CITRATE [Concomitant]
     Dates: start: 20150915
  12. LORATADINE. [Concomitant]
     Active Substance: LORATADINE
     Dates: start: 20150622, end: 20150915

REACTIONS (4)
  - Lymphoedema [Recovered/Resolved]
  - Drug intolerance [Unknown]
  - Hot flush [Recovered/Resolved]
  - Nausea [Recovered/Resolved]

NARRATIVE: CASE EVENT DATE: 20150714
